FAERS Safety Report 5370388-6 (Version None)
Quarter: 2007Q2

REPORT INFORMATION
  Report Type: 
  Country: None (occurrence: None)
  Receive Date: 20070625
  Receipt Date: 20070625
  Transmission Date: 20071010
  Serious: Yes (Hospitalization)
  Sender: FDA-Public Use
  Company Number: None

PATIENT
  Sex: Male
  Weight: 83 kg

DRUGS (4)
  1. ETODOLAC [Suspect]
     Indication: BACK PAIN
     Dosage: 200MG BID PRN PO
     Route: 048
     Dates: start: 20060930
  2. CLOPIDOGREL [Concomitant]
  3. METHOTREXATE [Concomitant]
  4. VICODIN [Concomitant]

REACTIONS (3)
  - EROSIVE OESOPHAGITIS [None]
  - GASTROINTESTINAL HAEMORRHAGE [None]
  - ULCER [None]
